FAERS Safety Report 9054194 (Version 1)
Quarter: 2013Q1

REPORT INFORMATION
  Report Type: Spontaneous
  Country: US (occurrence: US)
  Receive Date: 20130208
  Receipt Date: 20130208
  Transmission Date: 20140127
  Serious: Yes (Hospitalization)
  Sender: FDA-Public Use
  Company Number: US-ASTRAZENECA-2013SE07008

PATIENT
  Age: 77 Year
  Sex: Female
  Weight: 70.8 kg

DRUGS (5)
  1. SYMBICORT [Suspect]
     Indication: CHRONIC OBSTRUCTIVE PULMONARY DISEASE
     Dosage: 160/4.5 MCG TWO PUFFS TWO TIMES A DAY
     Route: 055
  2. SYMBICORT [Suspect]
     Indication: CHRONIC OBSTRUCTIVE PULMONARY DISEASE
     Dosage: 160/4.5 MCG TWO PUFFS TWO TIMES A DAY
     Route: 055
     Dates: start: 20130119, end: 20130121
  3. SYMBICORT [Suspect]
     Indication: CHRONIC OBSTRUCTIVE PULMONARY DISEASE
     Dosage: 160/4.5 MCG TWO PUFFS UNKNOWN TAKING LESS THAN PRESCRIBED
     Route: 055
     Dates: start: 201301
  4. LOSARTAN POTASSIUM [Concomitant]
     Indication: HYPERTENSION
     Route: 048
  5. VENTOLIN [Concomitant]
     Indication: INHALATION THERAPY

REACTIONS (4)
  - Bronchitis [Recovered/Resolved]
  - Off label use [Unknown]
  - Intentional drug misuse [Unknown]
  - Drug dose omission [Recovered/Resolved]
